FAERS Safety Report 8010146-7 (Version None)
Quarter: 2011Q4

REPORT INFORMATION
  Report Type: 
  Country: None (occurrence: None)
  Receive Date: 20111221
  Receipt Date: 20111206
  Transmission Date: 20120403
  Serious: Yes (Hospitalization, Other)
  Sender: FDA-Public Use
  Company Number: JPI-P-003822

PATIENT
  Age: 45 Year
  Sex: Male
  Weight: 95.2554 kg

DRUGS (11)
  1. FLUOXETINE HYDROCHLORIDE [Concomitant]
  2. ARMODAFINIL [Concomitant]
  3. ZOLPIDEM TARTRATE [Suspect]
     Indication: MIDDLE INSOMNIA
     Dates: start: 20090101
  4. OMEPRAZOLE [Concomitant]
  5. LAMOTRIGINE [Concomitant]
  6. UNSPECIFIED SLEEPING PILLS(PILL) [Suspect]
     Indication: MIDDLE INSOMNIA
  7. XYREM [Suspect]
     Indication: CATAPLEXY
     Dosage: SEE IMAGE
     Route: 048
     Dates: start: 20080501, end: 20080501
  8. XYREM [Suspect]
     Indication: CATAPLEXY
     Dosage: SEE IMAGE
     Route: 048
     Dates: end: 20080522
  9. XYREM [Suspect]
     Indication: CATAPLEXY
     Dosage: SEE IMAGE
     Route: 048
     Dates: start: 20080527
  10. XYREM [Suspect]
     Indication: CATAPLEXY
     Dosage: SEE IMAGE
     Route: 048
     Dates: start: 20080523, end: 20080523
  11. XYREM [Suspect]
     Indication: CATAPLEXY
     Dosage: SEE IMAGE
     Route: 048
     Dates: start: 20060201

REACTIONS (12)
  - DEPRESSION [None]
  - BIPOLAR DISORDER [None]
  - ABNORMAL BEHAVIOUR [None]
  - UNRESPONSIVE TO STIMULI [None]
  - CONDITION AGGRAVATED [None]
  - DRUG TOLERANCE INCREASED [None]
  - INSOMNIA [None]
  - MIDDLE INSOMNIA [None]
  - OVERDOSE [None]
  - CATAPLEXY [None]
  - SLEEP-RELATED EATING DISORDER [None]
  - SOMNAMBULISM [None]
